FAERS Safety Report 10951229 (Version 1)
Quarter: 2015Q1

REPORT INFORMATION
  Report Type: Spontaneous
  Country: US (occurrence: None)
  Receive Date: 20150226
  Receipt Date: 20150226
  Transmission Date: 20150721
  Serious: Yes (Hospitalization)
  Sender: FDA-Public Use
  Company Number: TAP2009Q00145

PATIENT
  Age: 86 Year
  Sex: Female
  Weight: 53.18 kg

DRUGS (9)
  1. MIDODRINE [Concomitant]
     Active Substance: MIDODRINE
  2. ZOCOR [Concomitant]
     Active Substance: SIMVASTATIN
  3. ALLEGRA [Concomitant]
     Active Substance: FEXOFENADINE HYDROCHLORIDE
  4. PREVACID [Suspect]
     Active Substance: LANSOPRAZOLE
     Indication: FLATULENCE
     Route: 048
     Dates: start: 2008, end: 2008
  5. CALIUM PLUS D (ERGOCALCIFEROL, CALCIUM) [Concomitant]
  6. PREVACID [Suspect]
     Active Substance: LANSOPRAZOLE
     Indication: BURNING SENSATION
     Route: 048
     Dates: start: 2008, end: 2008
  7. PREVACID [Suspect]
     Active Substance: LANSOPRAZOLE
     Indication: DIARRHOEA
     Route: 048
     Dates: start: 2008, end: 2008
  8. AGGRENOX (ACETYLALICYLICACID, DIPYRIDAMOLE) [Concomitant]
  9. SYNTHROID [Concomitant]
     Active Substance: LEVOTHYROXINE SODIUM

REACTIONS (1)
  - Cerebrovascular accident [None]

NARRATIVE: CASE EVENT DATE: 200804
